FAERS Safety Report 10675440 (Version 1)
Quarter: 2014Q4

REPORT INFORMATION
  Report Type: Spontaneous
  Country: US (occurrence: US)
  Receive Date: 20141224
  Receipt Date: 20141224
  Transmission Date: 20150529
  Serious: No
  Sender: FDA-Public Use
  Company Number: US-GLAXOSMITHKLINE-A1063634A

PATIENT

DRUGS (2)
  1. FLOVENT [Suspect]
     Active Substance: FLUTICASONE PROPIONATE
     Indication: ASTHMA
     Dosage: DOSAGE STRENGTH = 44 MCG
     Route: 055
     Dates: start: 20131231
  2. VENTOLIN [Suspect]
     Active Substance: ALBUTEROL SULFATE
     Indication: ASTHMA
     Dosage: DOSAGE STRENGTH = 90 MCG
     Route: 065
     Dates: start: 20131231

REACTIONS (1)
  - Drug dose omission [Unknown]
